FAERS Safety Report 6038752-X (Version None)
Quarter: 2009Q1

REPORT INFORMATION
  Report Type: 
  Country: None (occurrence: None)
  Receive Date: 20090115
  Receipt Date: 20080206
  Transmission Date: 20090719
  Serious: No
  Sender: FDA-Public Use
  Company Number: US-ABBOTT-08P-163-0437550-00

PATIENT
  Sex: Male
  Weight: 95.34 kg

DRUGS (2)
  1. ADVICOR [Suspect]
     Indication: BLOOD CHOLESTEROL INCREASED
     Dosage: TOTAL DAILY DOSE 1000/20 MG
     Route: 048
     Dates: start: 20071001, end: 20080207
  2. ADVICOR [Suspect]
     Dosage: TOTAL DAILY DOSE 1000/20 MG
     Route: 048
     Dates: start: 20080209

REACTIONS (3)
  - FLUSHING [None]
  - PARAESTHESIA [None]
  - PRURITUS [None]
